FAERS Safety Report 17897603 (Version 14)
Quarter: 2021Q1

REPORT INFORMATION
  Report Type: Report from Study
  Country: US (occurrence: US)
  Receive Date: 20200615
  Receipt Date: 20210203
  Transmission Date: 20210419
  Serious: Yes (Hospitalization, Other)
  Sender: FDA-Public Use
  Company Number: NVSC2020US165823

PATIENT
  Age: 1 Year
  Sex: Female
  Weight: 8.93 kg

DRUGS (44)
  1. PEPCID [Concomitant]
     Active Substance: FAMOTIDINE
     Dosage: 8 MG, QD
     Route: 048
     Dates: start: 20200615
  2. SMOFLIPID [Concomitant]
     Active Substance: FISH OIL\MEDIUM-CHAIN TRIGLYCERIDES\OLIVE OIL\SOYBEAN OIL
     Indication: FATTY ACID DEFICIENCY
     Dosage: 1 G/KG, CONT (TPN AT 1.5 ML/HR)
     Route: 042
     Dates: start: 20200614, end: 20200614
  3. SMOFLIPID [Concomitant]
     Active Substance: FISH OIL\MEDIUM-CHAIN TRIGLYCERIDES\OLIVE OIL\SOYBEAN OIL
     Dosage: 1 G/KG, CONT (TPN AT 1.8 ML/HR)
     Route: 042
     Dates: start: 20200614, end: 20200614
  4. SMOFLIPID [Concomitant]
     Active Substance: FISH OIL\MEDIUM-CHAIN TRIGLYCERIDES\OLIVE OIL\SOYBEAN OIL
     Dosage: 1 G/KG, CONT (TPN AT 1.8 ML/HR)
     Route: 042
     Dates: start: 20200615, end: 20200616
  5. DELTASONE [Concomitant]
     Active Substance: PREDNISONE
     Indication: PRODUCT USED FOR UNKNOWN INDICATION
     Dosage: 20 MG, Q24H
     Route: 048
     Dates: start: 20200622, end: 20200623
  6. DEXTROSE AND SODIUM CHLORIDE [Concomitant]
     Active Substance: DEXTROSE MONOHYDRATE\SODIUM CHLORIDE
     Dosage: 3 ML/HR (DEXTROSE 0.5% AND SODIUM CHLORIDE 0.45%), CONT
     Route: 042
     Dates: start: 20200614, end: 20200614
  7. PROCARDIA [Concomitant]
     Active Substance: NIFEDIPINE
     Dosage: 5 MG, Q4H
     Route: 048
     Dates: start: 20200619
  8. SMOFLIPID [Concomitant]
     Active Substance: FISH OIL\MEDIUM-CHAIN TRIGLYCERIDES\OLIVE OIL\SOYBEAN OIL
     Dosage: 1 G/KG, CONT (TPN AT 2.3 ML/HR)
     Route: 042
     Dates: start: 20200614, end: 20200614
  9. MIRALAX [Concomitant]
     Active Substance: POLYETHYLENE GLYCOL 3350
     Dosage: 4.25 G, BID
     Route: 048
     Dates: start: 20200621
  10. ACETAMINOPHEN. [Concomitant]
     Active Substance: ACETAMINOPHEN
     Indication: PRODUCT USED FOR UNKNOWN INDICATION
     Dosage: UNK
     Route: 065
  11. PEPCID [Concomitant]
     Active Substance: FAMOTIDINE
     Indication: GASTRIC DISORDER
     Dosage: 5 MG, Q12H
     Route: 042
     Dates: start: 20200614, end: 20200614
  12. PROCARDIA [Concomitant]
     Active Substance: NIFEDIPINE
     Dosage: 5 MG, ONCE/SINGLE
     Route: 048
     Dates: start: 20200618, end: 20200619
  13. DEXTROSE AND SODIUM CHLORIDE [Concomitant]
     Active Substance: DEXTROSE MONOHYDRATE\SODIUM CHLORIDE
     Dosage: 3 ML/HR (DEXTROSE 0.5% AND SODIUM CHLORIDE 0.45%), CONT
     Route: 042
     Dates: start: 20200614, end: 20200619
  14. TYLENOL [Concomitant]
     Active Substance: ACETAMINOPHEN
     Indication: PRODUCT USED FOR UNKNOWN INDICATION
     Dosage: 15 MG/KG, ONCE/SINGLE
     Route: 048
     Dates: start: 20200623, end: 20200623
  15. LASIX [Concomitant]
     Active Substance: FUROSEMIDE
     Indication: FLUID OVERLOAD
     Dosage: 1 MG/KG (8.5 MG), ONCE/SINGLE
     Route: 042
     Dates: start: 20200614, end: 20200614
  16. CYTRA K [Concomitant]
     Indication: PRODUCT USED FOR UNKNOWN INDICATION
     Dosage: 2 ML, TID
     Route: 048
  17. ZOLGENSMA [Suspect]
     Active Substance: ONASEMNOGENE ABEPARVOVEC-XIOI
     Indication: SPINAL MUSCULAR ATROPHY
     Dosage: 49.5 ML, ONCE/SINGLE (1.1XE14VG/KG)
     Route: 042
     Dates: start: 20200604
  18. AMOXICILLIN. [Concomitant]
     Active Substance: AMOXICILLIN
     Indication: PROPHYLAXIS
     Dosage: 1.1 ML, BID
     Route: 065
  19. PEPCID [Concomitant]
     Active Substance: FAMOTIDINE
     Dosage: 4 MG, QD
     Route: 048
     Dates: start: 20200615, end: 20200615
  20. GLYCERIN. [Concomitant]
     Active Substance: GLYCERIN
     Indication: PRODUCT USED FOR UNKNOWN INDICATION
     Dosage: 0.5 DF, ONCE/SINGLE
     Route: 054
     Dates: start: 20200618, end: 20200618
  21. SMOFLIPID [Concomitant]
     Active Substance: FISH OIL\MEDIUM-CHAIN TRIGLYCERIDES\OLIVE OIL\SOYBEAN OIL
     Dosage: 1 G/KG, CONT (TPN AT 1.77 ML/HR)
     Route: 042
     Dates: start: 20200618, end: 20200619
  22. MIRALAX [Concomitant]
     Active Substance: POLYETHYLENE GLYCOL 3350
     Indication: CONSTIPATION
     Dosage: 8.5 G, PRN
     Route: 048
     Dates: start: 20200614, end: 20200617
  23. BEXSERO [Concomitant]
     Active Substance: NEISSERIA MENINGITIDIS GROUP B FHBP FUSION PROTEIN ANTIGEN\NEISSERIA MENINGITIDIS GROUP B NADA PROTEIN ANTIGEN\NEISSERIA MENINGITIDIS GROUP B NHBA FUSION PROTEIN ANTIGEN\NEISSERIA MENINGITIDIS GROUP B STRAIN NZ98/254 OUTER MEMBRANE VESICLE\NEISSERIA MENINGITIDIS SEROGROUP B FHBP FUSION PROTEIN ANTIG
     Indication: IMMUNISATION
     Dosage: 0.5 ML (50?50?50?25 MCG/0.5 ML), DURING HOSPITALIZATION
     Route: 030
     Dates: start: 20200622, end: 20200622
  24. PEPCID [Concomitant]
     Active Substance: FAMOTIDINE
     Dosage: 8 MG, QD
     Route: 048
     Dates: start: 20200611
  25. PROCARDIA [Concomitant]
     Active Substance: NIFEDIPINE
     Dosage: 5 MG, ONCE/SINGLE
     Route: 048
     Dates: start: 20200618, end: 20200618
  26. SMOFLIPID [Concomitant]
     Active Substance: FISH OIL\MEDIUM-CHAIN TRIGLYCERIDES\OLIVE OIL\SOYBEAN OIL
     Dosage: 1 G/KG, CONT (TPN AT 1.8 ML/HR)
     Route: 042
     Dates: start: 20200615, end: 20200615
  27. SMOFLIPID [Concomitant]
     Active Substance: FISH OIL\MEDIUM-CHAIN TRIGLYCERIDES\OLIVE OIL\SOYBEAN OIL
     Dosage: 1 G/KG, CONT (TPN AT 1.77 ML/HR)
     Route: 042
     Dates: start: 20200616, end: 20200617
  28. SMOFLIPID [Concomitant]
     Active Substance: FISH OIL\MEDIUM-CHAIN TRIGLYCERIDES\OLIVE OIL\SOYBEAN OIL
     Dosage: 1 G/KG, CONT (TPN AT 1.77 ML/HR)
     Route: 042
     Dates: start: 20200617, end: 20200618
  29. DEXTROSE AND SODIUM CHLORIDE [Concomitant]
     Active Substance: DEXTROSE MONOHYDRATE\SODIUM CHLORIDE
     Dosage: 3 ML/HR (DEXTROSE 0.5% AND SODIUM CHLORIDE 0.45%), CONT
     Route: 042
     Dates: start: 20200614, end: 20200614
  30. ECULIZUMAB [Concomitant]
     Active Substance: ECULIZUMAB
     Indication: PRODUCT USED FOR UNKNOWN INDICATION
     Dosage: UNK
     Route: 065
  31. PEPCID [Concomitant]
     Active Substance: FAMOTIDINE
     Indication: PROPHYLAXIS
     Dosage: 4 MG, QD
     Route: 048
     Dates: start: 20200603, end: 20200610
  32. PEPCID [Concomitant]
     Active Substance: FAMOTIDINE
     Dosage: 5 MG, Q12H
     Route: 042
     Dates: start: 20200614, end: 20200614
  33. PEPCID [Concomitant]
     Active Substance: FAMOTIDINE
     Dosage: 0.5 MG/KG (4.2 MG), Q12H
     Route: 042
     Dates: start: 20200614, end: 20200614
  34. PEPCID [Concomitant]
     Active Substance: FAMOTIDINE
     Dosage: 0.5 MG/KG, (4.2MG) Q12H
     Route: 042
     Dates: start: 20200614, end: 20200614
  35. PROCARDIA [Concomitant]
     Active Substance: NIFEDIPINE
     Indication: PRODUCT USED FOR UNKNOWN INDICATION
     Dosage: 0.25 MG/KG (2.12 MG), Q4H
     Route: 048
     Dates: start: 20200615
  36. SMOFLIPID [Concomitant]
     Active Substance: FISH OIL\MEDIUM-CHAIN TRIGLYCERIDES\OLIVE OIL\SOYBEAN OIL
     Dosage: 1 G/KG, CONT (TPN AT 1.8 ML/HR)
     Route: 042
     Dates: start: 20200614, end: 20200615
  37. VEETIDS [Concomitant]
     Active Substance: PENICILLIN V POTASSIUM
     Indication: PROPHYLAXIS
     Dosage: 125 MG, BID
     Route: 048
     Dates: start: 20200623
  38. MENVEO [Concomitant]
     Active Substance: NEISSERIA MENINGITIDIS GROUP A CAPSULAR OLIGOSACCHARIDE DIPHTHERIA CRM197 PROTEIN CONJUGATE ANTIGEN\NEISSERIA MENINGITIDIS GROUP C CAPSULAR OLIGOSACCHARIDE DIPHTHERIA CRM197 PROTEIN CONJUGATE ANTIGEN\NEISSERIA MENINGITIDIS GROUP W-135 CAPSULAR OLIGOSACCHARIDE DIPHTHERIA CRM197 PROTEIN CONJUGATE ANTI
     Indication: IMMUNISATION
     Dosage: 0.5 ML (10?5 MCG/0.5 ML), DURING HOSPITALIZATION
     Route: 030
     Dates: start: 20200622, end: 20200622
  39. SMOFLIPID [Concomitant]
     Active Substance: FISH OIL\MEDIUM-CHAIN TRIGLYCERIDES\OLIVE OIL\SOYBEAN OIL
     Dosage: 1 G/KG, CONT (TPN AT 1.8 ML/HR)
     Route: 042
     Dates: start: 20200614, end: 20200614
  40. MIRALAX [Concomitant]
     Active Substance: POLYETHYLENE GLYCOL 3350
     Dosage: 8.5 G, BID
     Route: 048
     Dates: start: 20200617, end: 20200621
  41. LIDOCAINE. [Concomitant]
     Active Substance: LIDOCAINE
     Indication: PRODUCT USED FOR UNKNOWN INDICATION
     Dosage: 0.1 ML (BUFFERED INJECTION), PRN
     Route: 042
     Dates: start: 20200614
  42. DEXTROSE AND SODIUM CHLORIDE [Concomitant]
     Active Substance: DEXTROSE MONOHYDRATE\SODIUM CHLORIDE
     Indication: PRODUCT USED FOR UNKNOWN INDICATION
     Dosage: 10 ML/HR (DEXTROSE 0.5% AND SODIUM CHLORIDE 0.45%), CONT
     Route: 042
     Dates: start: 20200614, end: 20200614
  43. AQUAPHOR OINTMENT [Concomitant]
     Active Substance: ALCOHOL\LIGHT MINERAL OIL\PETROLATUM
     Indication: DRY SKIN
     Dosage: 1 APPLICATION, PRN
     Route: 061
     Dates: start: 20200614
  44. OCEAN SALINE NASAL SPRAY [Concomitant]
     Active Substance: SODIUM CHLORIDE
     Indication: PRODUCT USED FOR UNKNOWN INDICATION
     Dosage: 1 DF, QH (FOR BIPAP)
     Route: 006
     Dates: start: 20200614

REACTIONS (57)
  - Dehydration [Recovered/Resolved]
  - Escherichia urinary tract infection [Not Recovered/Not Resolved]
  - Irritability [Recovered/Resolved]
  - Neutrophil count increased [Recovered/Resolved]
  - Complement factor C3 decreased [Not Recovered/Not Resolved]
  - Aspartate aminotransferase increased [Recovered/Resolved]
  - Blood lactate dehydrogenase increased [Not Recovered/Not Resolved]
  - Metamyelocyte count increased [Recovered/Resolved]
  - Haemolytic anaemia [Recovered/Resolved]
  - Hypoalbuminaemia [Recovered/Resolved]
  - Dehydration [Recovered/Resolved]
  - Cellulitis [Recovered/Resolved]
  - Periorbital oedema [Unknown]
  - Eosinophil count increased [Recovered/Resolved]
  - Blood calcium decreased [Recovered/Resolved]
  - Troponin I increased [Recovered/Resolved]
  - Leukocytosis [Recovered/Resolved]
  - Nephrotic syndrome [Recovering/Resolving]
  - Hypertensive crisis [Recovered/Resolved]
  - Hypoglycaemia [Recovered/Resolved]
  - Normochromic normocytic anaemia [Recovered/Resolved]
  - Lymphocyte count decreased [Recovered/Resolved]
  - Blood alkaline phosphatase decreased [Recovered/Resolved]
  - Lymphocyte count increased [Recovered/Resolved]
  - Stoma site reaction [Not Recovered/Not Resolved]
  - Hypertension [Not Recovered/Not Resolved]
  - Fatigue [Unknown]
  - Immature granulocyte count increased [Recovered/Resolved]
  - Reticulocyte count increased [Not Recovered/Not Resolved]
  - Vomiting [Recovered/Resolved]
  - Oedema peripheral [Unknown]
  - Monocyte count increased [Recovered/Resolved]
  - Blood albumin decreased [Recovered/Resolved]
  - Carbon dioxide decreased [Recovered/Resolved]
  - Thrombotic microangiopathy [Recovered/Resolved]
  - Vomiting [Recovered/Resolved]
  - Haematuria [Unknown]
  - Nausea [Unknown]
  - Myelocyte count increased [Recovered/Resolved]
  - Plasma cells increased [Recovered/Resolved]
  - Coronavirus infection [Not Recovered/Not Resolved]
  - Thrombocytopenia [Recovered/Resolved]
  - Atypical haemolytic uraemic syndrome [Recovering/Resolving]
  - Proteinuria [Recovering/Resolving]
  - Leukopenia [Recovered/Resolved]
  - Hyperkalaemia [Recovered/Resolved]
  - Urinary tract infection [Recovered/Resolved]
  - Alanine aminotransferase increased [Recovered/Resolved]
  - Cold sweat [Unknown]
  - Gamma-glutamyltransferase increased [Recovered/Resolved]
  - Hyponatraemia [Recovered/Resolved]
  - Haemoglobin decreased [Recovered/Resolved]
  - Pyrexia [Recovered/Resolved]
  - Metamyelocyte count increased [Recovered/Resolved]
  - Basophil count increased [Recovered/Resolved]
  - Blood chloride increased [Recovered/Resolved]
  - Selective eating disorder [Not Recovered/Not Resolved]

NARRATIVE: CASE EVENT DATE: 20200605
